FAERS Safety Report 5277289-2 (Version None)
Quarter: 2007Q1

REPORT INFORMATION
  Report Type: 
  Country: None (occurrence: None)
  Receive Date: 20061213
  Receipt Date: 20060713
  Transmission Date: 20070707
  Serious: No
  Sender: FDA-Public Use
  Company Number: 2006UW14419

PATIENT
  Sex: Female

DRUGS (4)
  1. SEROQUEL [Suspect]
     Indication: SOMNOLENCE
     Dosage: 200 MG HS PO
     Route: 048
  2. TYLENOL [Concomitant]
  3. MUSCLE RELAXANT [Concomitant]
  4. HORMONES [Concomitant]

REACTIONS (4)
  - BLOOD URINE PRESENT [None]
  - CHROMATURIA [None]
  - PANCREATITIS [None]
  - URINARY TRACT INFECTION [None]
